FAERS Safety Report 10205670 (Version 1)
Quarter: 2014Q2

REPORT INFORMATION
  Report Type: Spontaneous
  Country: US (occurrence: US)
  Receive Date: 20140530
  Receipt Date: 20140530
  Transmission Date: 20141212
  Serious: Yes (Other)
  Sender: FDA-Public Use
  Company Number: US-AMGEN INC.-USASP2014039690

PATIENT
  Age: 49 Year
  Sex: Female

DRUGS (17)
  1. EPOGEN [Suspect]
     Indication: NEPHROGENIC ANAEMIA
     Dosage: UNK
     Route: 065
  2. AMLODIPINE [Concomitant]
     Dosage: 5 MG, DAILY
  3. ASPIRIN [Concomitant]
     Dosage: 81 MG, DAILY
  4. CALCIUM [Concomitant]
     Dosage: THREE TIMES DAILY
  5. VITAMIN D3 [Concomitant]
     Dosage: 2000 UNIT, DAILY
  6. CYCLOSPORINE [Concomitant]
     Dosage: 10 MG, TWICE DAILY
  7. DOXYCYCLINE [Concomitant]
     Dosage: 100 MG, AT BEDTIME
  8. NEXIUM                             /01479302/ [Concomitant]
     Dosage: 40 MG, TWICE DAILY
  9. FOLIC ACID [Concomitant]
     Dosage: 1 MG, TWICE DAILY
  10. HUMALOG [Concomitant]
     Dosage: 0-20 UNITS 3 TIMES DAILY WITH MEALS
  11. LACTOBACILLUS [Concomitant]
     Dosage: DAILY
  12. MAGNESIUM [Concomitant]
     Dosage: 400 MG, DAILY
  13. REGLAN                             /00041901/ [Concomitant]
     Dosage: 10 MG, TWICE DAILY
  14. MYCOPHENOLATE [Concomitant]
     Dosage: 360 MG, TWICE DAILY
  15. PREDNISONE [Concomitant]
     Dosage: 5 MG, DAILY
  16. SCOPOLAMINE                        /00008701/ [Concomitant]
     Dosage: 1.5 MG EVERY 3 DAY
  17. BACTRIM [Concomitant]
     Dosage: 400/80 EVERY OTHER DAY

REACTIONS (1)
  - Haemoglobin abnormal [Unknown]
